FAERS Safety Report 4914453-3 (Version None)
Quarter: 2006Q1

REPORT INFORMATION
  Report Type: 
  Country: None (occurrence: None)
  Receive Date: 20060113
  Receipt Date: 20051017
  Transmission Date: 20060701
  Serious: No
  Sender: FDA-Public Use
  Company Number: 2005SP002319

PATIENT
  Age: 37 Year
  Sex: Female
  Weight: 66.2252 kg

DRUGS (7)
  1. LUNESTA [Suspect]
     Indication: FIBROMYALGIA
     Dosage: 2 MG;HS;ORAL ; 3 MG;HS;ORAL ; 4 MG;HS;ORAL
     Route: 048
     Dates: start: 20050701, end: 20050101
  2. LUNESTA [Suspect]
     Indication: INSOMNIA
     Dosage: 2 MG;HS;ORAL ; 3 MG;HS;ORAL ; 4 MG;HS;ORAL
     Route: 048
     Dates: start: 20050701, end: 20050101
  3. LUNESTA [Suspect]
     Indication: FIBROMYALGIA
     Dosage: 2 MG;HS;ORAL ; 3 MG;HS;ORAL ; 4 MG;HS;ORAL
     Route: 048
     Dates: start: 20050601, end: 20050701
  4. LUNESTA [Suspect]
     Indication: INSOMNIA
     Dosage: 2 MG;HS;ORAL ; 3 MG;HS;ORAL ; 4 MG;HS;ORAL
     Route: 048
     Dates: start: 20050601, end: 20050701
  5. LUNESTA [Suspect]
     Indication: FIBROMYALGIA
     Dosage: 2 MG;HS;ORAL ; 3 MG;HS;ORAL ; 4 MG;HS;ORAL
     Route: 048
     Dates: start: 20050101, end: 20050810
  6. LUNESTA [Suspect]
     Indication: INSOMNIA
     Dosage: 2 MG;HS;ORAL ; 3 MG;HS;ORAL ; 4 MG;HS;ORAL
     Route: 048
     Dates: start: 20050101, end: 20050810
  7. VICODIN [Concomitant]

REACTIONS (4)
  - DRUG EFFECT DECREASED [None]
  - DYSGEUSIA [None]
  - NAUSEA [None]
  - WEIGHT INCREASED [None]
